FAERS Safety Report 7766111-8 (Version None)
Quarter: 2011Q3

REPORT INFORMATION
  Report Type: 
  Country: None (occurrence: None)
  Receive Date: 20110921
  Receipt Date: 20110914
  Transmission Date: 20111222
  Serious: Yes (Hospitalization)
  Sender: FDA-Public Use
  Company Number: US-GENENTECH-322986

PATIENT
  Sex: Female
  Weight: 56.236 kg

DRUGS (2)
  1. RITUXAN [Suspect]
     Indication: CHRONIC LYMPHOCYTIC LEUKAEMIA
  2. RITUXAN [Suspect]
     Indication: LYMPHOMA
     Dosage: 466 UNK, Q3W
     Route: 042
     Dates: start: 20110802, end: 20110802

REACTIONS (6)
  - TUMOUR LYSIS SYNDROME [None]
  - BLOOD POTASSIUM INCREASED [None]
  - RENAL PAIN [None]
  - HEART RATE DECREASED [None]
  - BACK PAIN [None]
  - ABDOMINAL PAIN [None]
